FAERS Safety Report 8144488-1 (Version None)
Quarter: 2012Q1

REPORT INFORMATION
  Report Type: 
  Country: None (occurrence: None)
  Receive Date: 20120217
  Receipt Date: 20120207
  Transmission Date: 20120608
  Serious: Yes (Disabling)
  Sender: FDA-Public Use
  Company Number: ES-ABBOTT-11P-144-0734028-00

PATIENT
  Age: 48 Year
  Sex: Female
  Weight: 82 kg

DRUGS (13)
  1. PREDNISONE [Concomitant]
     Indication: GASTROINTESTINAL DISORDER
     Route: 048
     Dates: start: 20110509, end: 20110515
  2. OMEPRAZOLE [Concomitant]
     Indication: GASTRIC DISORDER
  3. HUMIRA [Suspect]
     Indication: UVEITIS
     Route: 058
     Dates: start: 20110509, end: 20110620
  4. IDEOS CALCIUM [Concomitant]
     Indication: UVEITIS
     Route: 048
     Dates: start: 20110118, end: 20110520
  5. PREDNISONE [Concomitant]
     Dates: start: 20040101
  6. IMURAN [Concomitant]
     Indication: UVEITIS
     Route: 048
     Dates: start: 20081201
  7. PREDNISONE [Concomitant]
     Indication: MINERAL SUPPLEMENTATION
     Route: 048
     Dates: start: 20110524
  8. OMEPRAZOLE [Concomitant]
     Indication: PROPHYLAXIS
     Route: 048
     Dates: start: 20110118
  9. PREDNISONE [Concomitant]
     Indication: UVEITIS
     Dates: start: 20110117, end: 20110314
  10. PREDNISONE [Concomitant]
     Indication: PROPHYLAXIS
     Route: 048
     Dates: start: 20110516, end: 20110523
  11. DICYCLOMINE HCL [Concomitant]
     Indication: PRODUCT USED FOR UNKNOWN INDICATION
     Dates: start: 19970101
  12. COLCHICINE [Concomitant]
     Indication: UVEITIS
     Route: 048
     Dates: start: 19970101
  13. IBUPROFEN [Concomitant]
     Indication: CARPAL TUNNEL SYNDROME
     Dates: start: 20110316, end: 20110419

REACTIONS (1)
  - BEHCET'S SYNDROME [None]
